FAERS Safety Report 7205488-9 (Version None)
Quarter: 2010Q4

REPORT INFORMATION
  Report Type: 
  Country: None (occurrence: None)
  Receive Date: 20101231
  Receipt Date: 20101220
  Transmission Date: 20110411
  Serious: Yes (Hospitalization, Other)
  Sender: FDA-Public Use
  Company Number: PHEH2006US10940

PATIENT
  Sex: Male
  Weight: 68.027 kg

DRUGS (56)
  1. AREDIA [Suspect]
     Dosage: 90MG Q3MOS
     Dates: start: 20020614, end: 20021217
  2. AREDIA [Suspect]
     Dosage: 30 MG, ONCE/SINGLE
     Dates: start: 20030320, end: 20030320
  3. AREDIA [Suspect]
     Dosage: 90 MG, QMO
     Dates: start: 20030727, end: 20040428
  4. AREDIA [Suspect]
     Dosage: 90 MG, Q2MO
     Dates: start: 20040614, end: 20051109
  5. AREDIA [Suspect]
     Dosage: 90MG Q3-4MOS
     Dates: start: 20060215
  6. THALIDOMIDE [Suspect]
     Dates: start: 20020601
  7. ANTIHYPERTENSIVE DRUGS [Concomitant]
  8. AVASTIN [Concomitant]
     Dosage: 700MG Q3WKS
     Route: 042
  9. TAXOTERE [Concomitant]
  10. CARBOPLATIN [Concomitant]
  11. GEMZAR [Concomitant]
  12. KETOCONAZOLE [Concomitant]
  13. CYTOXAN [Concomitant]
  14. INTRON A [Concomitant]
  15. PROSCAR [Concomitant]
  16. COUMADIN [Concomitant]
  17. TESTOSTERONE [Concomitant]
  18. LIPITOR [Concomitant]
     Dosage: 40 MG, QD
  19. NEXIUM [Concomitant]
  20. DECADRON #1 [Concomitant]
     Indication: PREMEDICATION
     Dosage: 4 MG, UNK
     Route: 042
     Dates: start: 20020614
  21. HYDROCORTISONE [Concomitant]
     Dates: start: 20030513, end: 20040217
  22. GABAPENTIN [Concomitant]
  23. NEUMEGA [Concomitant]
  24. REVLIMID [Concomitant]
  25. DILAUDID [Concomitant]
  26. DARVOCET-N 100 [Concomitant]
  27. ROCEPHIN [Concomitant]
  28. CIPRO [Concomitant]
  29. NORCO [Concomitant]
  30. ENTEX CAP [Concomitant]
  31. ANDROGEL [Concomitant]
  32. DIOVAN HCT [Concomitant]
  33. VITAMIN E [Concomitant]
  34. DIOVAN [Concomitant]
  35. KEFLEX [Concomitant]
  36. LASIX [Concomitant]
  37. VITAMIN B6 [Concomitant]
  38. ASPIRIN [Concomitant]
  39. CELEBREX [Concomitant]
  40. CURCUMEN [Concomitant]
  41. ESTINYL [Concomitant]
  42. ROCALTROL [Concomitant]
  43. LEUKINE [Concomitant]
  44. ALDACTONE [Concomitant]
  45. LUPRON [Concomitant]
  46. ZYPREXA [Concomitant]
  47. VANCOMYCIN [Concomitant]
  48. SANDOSTATIN [Concomitant]
  49. CHLORHEXIDINE [Concomitant]
  50. TARCEVA [Concomitant]
  51. EPOGEN [Concomitant]
  52. GEMZAR [Concomitant]
  53. EMCYT [Concomitant]
  54. AVODART [Concomitant]
  55. PROVIGIL [Concomitant]
  56. ARANESP [Concomitant]

REACTIONS (82)
  - ABDOMINAL DISCOMFORT [None]
  - ABDOMINAL PAIN [None]
  - AMNESIA [None]
  - ANAEMIA [None]
  - ANHEDONIA [None]
  - ANXIETY [None]
  - AORTIC ARTERIOSCLEROSIS [None]
  - APHASIA [None]
  - BACK PAIN [None]
  - BONE DENSITY DECREASED [None]
  - BONE DISORDER [None]
  - BOWEL MOVEMENT IRREGULARITY [None]
  - CELLULITIS [None]
  - CEREBRAL ATROPHY [None]
  - CEREBRAL INFARCTION [None]
  - CEREBROVASCULAR ACCIDENT [None]
  - CHOLELITHIASIS [None]
  - DECREASED APPETITE [None]
  - DERMAL CYST [None]
  - DIARRHOEA [None]
  - DISABILITY [None]
  - DIVERTICULUM [None]
  - DYSARTHRIA [None]
  - ENCEPHALOMALACIA [None]
  - ENTEROCOLITIS [None]
  - GINGIVAL BLEEDING [None]
  - GINGIVAL INFECTION [None]
  - GINGIVAL PAIN [None]
  - GINGIVAL RECESSION [None]
  - GINGIVITIS [None]
  - GLIOSIS [None]
  - HEAT EXHAUSTION [None]
  - HEPATIC CYST [None]
  - HIATUS HERNIA [None]
  - HYPERLIPIDAEMIA [None]
  - HYPERTENSION [None]
  - HYPOAESTHESIA [None]
  - HYPOGEUSIA [None]
  - HYPOPHAGIA [None]
  - INJURY [None]
  - LEUKOPENIA [None]
  - LOOSE TOOTH [None]
  - LOSS OF CONSCIOUSNESS [None]
  - LYMPHADENOPATHY [None]
  - MALIGNANT NEOPLASM PROGRESSION [None]
  - MENTAL IMPAIRMENT [None]
  - MUCOSAL INFLAMMATION [None]
  - MUSCLE SPASMS [None]
  - MUSCLE STRAIN [None]
  - NASAL ODOUR [None]
  - NEPHROLITHIASIS [None]
  - NEUROPATHY PERIPHERAL [None]
  - NEUTROPENIA [None]
  - ORAL INFECTION [None]
  - ORAL PAIN [None]
  - OSTEOMYELITIS [None]
  - OSTEONECROSIS OF JAW [None]
  - OSTEOPENIA [None]
  - PAIN [None]
  - PAIN IN JAW [None]
  - PANCREATIC CYST [None]
  - PANCYTOPENIA [None]
  - PAROTID GLAND ENLARGEMENT [None]
  - PERIODONTAL DISEASE [None]
  - PLEURAL EFFUSION [None]
  - PRIMARY SEQUESTRUM [None]
  - PULMONARY CONGESTION [None]
  - RENAL CYST [None]
  - SALIVARY GLAND PAIN [None]
  - SINUS DISORDER [None]
  - SINUSITIS [None]
  - SOMNOLENCE [None]
  - SPINAL HAEMANGIOMA [None]
  - SPINAL OSTEOARTHRITIS [None]
  - SPONDYLOPATHY TRAUMATIC [None]
  - TENDONITIS [None]
  - THROMBOCYTOPENIA [None]
  - TOOTH FRACTURE [None]
  - TOOTHACHE [None]
  - TRISMUS [None]
  - URINARY HESITATION [None]
  - WEIGHT DECREASED [None]
